FAERS Safety Report 24958951 (Version 1)
Quarter: 2025Q1

REPORT INFORMATION
  Report Type: Other
  Country: US (occurrence: US)
  Receive Date: 20250212
  Receipt Date: 20250212
  Transmission Date: 20250408
  Serious: Yes (Hospitalization)
  Sender: ESJAY PHARMA
  Company Number: US-ESJAY PHARMA-000084

PATIENT
  Age: 65 Year
  Sex: Male

DRUGS (7)
  1. DONEPEZIL [Suspect]
     Active Substance: DONEPEZIL
     Indication: Antipsychotic therapy
  2. ESCITALOPRAM [Suspect]
     Active Substance: ESCITALOPRAM OXALATE
     Indication: Antipsychotic therapy
  3. ARIPIPRAZOLE [Concomitant]
     Active Substance: ARIPIPRAZOLE
     Indication: Antipsychotic therapy
  4. DIVALPROEX SODIUM [Concomitant]
     Active Substance: DIVALPROEX SODIUM
     Indication: Antipsychotic therapy
  5. QUETIAPINE [Concomitant]
     Active Substance: QUETIAPINE
     Indication: Antipsychotic therapy
  6. CLONAZEPAM [Concomitant]
     Active Substance: CLONAZEPAM
     Indication: Antipsychotic therapy
  7. immune-globulin [Concomitant]
     Indication: Dementia with Lewy bodies

REACTIONS (1)
  - Parkinsonism [Recovering/Resolving]
